FAERS Safety Report 5683527-4 (Version None)
Quarter: 2008Q1

REPORT INFORMATION
  Report Type: 
  Country: None (occurrence: None)
  Receive Date: 20080326
  Receipt Date: 20080319
  Transmission Date: 20080703
  Serious: Yes (Hospitalization)
  Sender: FDA-Public Use
  Company Number: 2008AL001777

PATIENT
  Age: 65 Year
  Sex: Male

DRUGS (11)
  1. CARVEDILOL [Suspect]
     Indication: HYPERTENSION
     Dosage: 3.125 MG;BID
  2. ENALAPRIL MALEATE [Concomitant]
  3. DILTIAZEM [Concomitant]
  4. METOPROLOL TARTRATE [Concomitant]
  5. METHYLDOPA [Concomitant]
  6. FOLIC ACID [Concomitant]
  7. RANITIDINE [Concomitant]
  8. PENTOXYFILLINE [Concomitant]
  9. FUROSEMIDE [Concomitant]
  10. RECOMBINANT HUMAN ERYTHROPOIETIN [Concomitant]
  11. HUMAN RECOMBINANT INSULIN [Concomitant]

REACTIONS (2)
  - CUTANEOUS VASCULITIS [None]
  - SKIN HYPERPIGMENTATION [None]
